FAERS Safety Report 21759632 (Version 1)
Quarter: 2022Q4

REPORT INFORMATION
  Report Type: Other
  Country: IN (occurrence: None)
  Receive Date: 20221221
  Receipt Date: 20221221
  Transmission Date: 20230113
  Serious: Yes (Other)
  Sender: FDA-Public Use
  Company Number: IN-ROCHE-3182100

PATIENT
  Age: 82 Year
  Sex: Male

DRUGS (2)
  1. TECENTRIQ [Suspect]
     Active Substance: ATEZOLIZUMAB
     Indication: Hepatocellular carcinoma
     Route: 042
     Dates: start: 20220322
  2. AVASTIN [Suspect]
     Active Substance: BEVACIZUMAB
     Indication: Hepatocellular carcinoma
     Route: 042
     Dates: start: 20220322

REACTIONS (7)
  - Disease progression [Unknown]
  - Malaise [Unknown]
  - Mouth ulceration [Not Recovered/Not Resolved]
  - Blister [Unknown]
  - Feeding disorder [Unknown]
  - Drug ineffective [Unknown]
  - Limb injury [Not Recovered/Not Resolved]
